FAERS Safety Report 10159324 (Version 1)
Quarter: 2014Q2

REPORT INFORMATION
  Report Type: Spontaneous
  Country: FR (occurrence: FR)
  Receive Date: 20140508
  Receipt Date: 20140508
  Transmission Date: 20141212
  Serious: Yes (Hospitalization)
  Sender: FDA-Public Use
  Company Number: FR-ROCHE-1393291

PATIENT
  Age: 68 Year
  Sex: Male
  Weight: 106 kg

DRUGS (15)
  1. ROCEPHINE [Suspect]
     Indication: ESCHERICHIA INFECTION
     Dosage: 1 TO 2 G DAILY
     Route: 042
     Dates: start: 20131230, end: 20140121
  2. COUMADINE [Suspect]
     Indication: DEEP VEIN THROMBOSIS
     Dosage: 2 TO 5 MG DAILY
     Route: 048
  3. LASILIX [Concomitant]
     Route: 065
  4. GLUCOSE [Concomitant]
     Route: 065
  5. VIALEBEX [Concomitant]
  6. SODIUM CHLORIDE [Concomitant]
     Dosage: SOLUTION OF SODIUM CHLORIDE AT 0.9%
     Route: 065
  7. INEXIUM [Concomitant]
  8. SERETIDE [Concomitant]
     Route: 065
  9. LEVOTHYROX [Concomitant]
     Route: 065
  10. SPECIAFOLDINE [Concomitant]
  11. SIMVASTATINE [Concomitant]
  12. PROPRANOLOL [Concomitant]
  13. BRICANYL [Concomitant]
  14. ESIDREX [Concomitant]
  15. DIFFU K [Concomitant]

REACTIONS (5)
  - Accidental overdose [Unknown]
  - Spontaneous haematoma [Recovered/Resolved]
  - Haemorrhage [Recovered/Resolved]
  - Intra-abdominal haematoma [Recovered/Resolved]
  - Subdural haematoma [Recovered/Resolved]
